FAERS Safety Report 9809460 (Version 2)
Quarter: 2014Q1

REPORT INFORMATION
  Report Type: Spontaneous
  Country: US (occurrence: US)
  Receive Date: 20140110
  Receipt Date: 20140110
  Transmission Date: 20141002
  Serious: Yes (Hospitalization)
  Sender: FDA-Public Use
  Company Number: US-SANOFI-AVENTIS-2011SA050535

PATIENT
  Age: 59 Year
  Sex: Male

DRUGS (7)
  1. PLAVIX [Suspect]
     Route: 065
  2. BLINDED THERAPY [Suspect]
     Indication: TYPE 2 DIABETES MELLITUS
     Route: 065
  3. METFORMIN HYDROCHLORIDE [Suspect]
     Indication: TYPE 2 DIABETES MELLITUS
     Route: 065
  4. CALCIUM CHANNEL BLOCKERS [Concomitant]
  5. HMG COA REDUCTASE INHIBITORS [Concomitant]
  6. NIACIN [Concomitant]
  7. BETA BLOCKING AGENTS [Concomitant]

REACTIONS (4)
  - Upper gastrointestinal haemorrhage [Recovered/Resolved]
  - Faeces discoloured [Recovered/Resolved]
  - Gastritis [Unknown]
  - Hiatus hernia [Unknown]
